FAERS Safety Report 4441542-2 (Version None)
Quarter: 2004Q3

REPORT INFORMATION
  Report Type: 
  Country: None (occurrence: None)
  Receive Date: 20040728
  Receipt Date: 20040316
  Transmission Date: 20050211
  Serious: Yes (Hospitalization)
  Sender: FDA-Public Use
  Company Number: USA040156251

PATIENT
  Age: 9 Year
  Sex: Male
  Weight: 80 kg

DRUGS (7)
  1. STRATTERA [Suspect]
     Indication: ATTENTION DEFICIT/HYPERACTIVITY DISORDER
     Dosage: 40 MG/DAY
     Dates: start: 20030801
  2. ZYPREXA [Suspect]
     Indication: AFFECTIVE DISORDER
     Dosage: 5 MG/IN THE MORNING
     Dates: start: 20040108
  3. ABILITY (ARIPIPRAZOLE) [Concomitant]
  4. TRILEPTAL [Concomitant]
  5. SEROQUEL [Concomitant]
  6. LEXAPRO [Concomitant]
  7. SINGULAIR [Concomitant]

REACTIONS (7)
  - AGGRESSION [None]
  - ANGER [None]
  - CRYING [None]
  - DRUG INEFFECTIVE [None]
  - MOOD SWINGS [None]
  - TIC [None]
  - WEIGHT INCREASED [None]
